FAERS Safety Report 6582681-X (Version None)
Quarter: 2010Q1

REPORT INFORMATION
  Report Type: 
  Country: None (occurrence: None)
  Receive Date: 20100216
  Receipt Date: 20100210
  Transmission Date: 20100710
  Serious: Yes (Life-Threatening)
  Sender: FDA-Public Use
  Company Number: FR-BRISTOL-MYERS SQUIBB COMPANY-14958599

PATIENT
  Age: 59 Year
  Sex: Female

DRUGS (2)
  1. TAXOL [Suspect]
     Route: 042
     Dates: start: 20090716, end: 20091027
  2. AVASTIN [Suspect]
     Route: 042
     Dates: start: 20090716, end: 20091027

REACTIONS (2)
  - CARDIAC FAILURE [None]
  - NEPHROTIC SYNDROME [None]
